FAERS Safety Report 4293329-1 (Version None)
Quarter: 2004Q1

REPORT INFORMATION
  Report Type: 
  Country: None (occurrence: None)
  Receive Date: 20040126
  Receipt Date: 20031114
  Transmission Date: 20041129
  Serious: No
  Sender: FDA-Public Use
  Company Number: USA031050590

PATIENT
  Age: 55 Year
  Sex: Female

DRUGS (9)
  1. FORTEO [Suspect]
     Indication: OSTEOPOROSIS
     Dosage: 20 UG/DAY
     Dates: start: 20031011
  2. EVISTA (RALOXEFEND HYDROCHLORIDE) [Concomitant]
  3. CELEBREX [Concomitant]
  4. PREVACID (LANSDOPRAZOLE) [Concomitant]
  5. MIACALCIN [Concomitant]
  6. CALCIUM [Concomitant]
  7. MULTI-VITAMIN [Concomitant]
  8. VITAMIN E [Concomitant]
  9. ASPIRIN [Concomitant]

REACTIONS (3)
  - HEADACHE [None]
  - NAUSEA [None]
  - PAIN IN EXTREMITY [None]
